FAERS Safety Report 7274686-0 (Version None)
Quarter: 2011Q1

REPORT INFORMATION
  Report Type: 
  Country: None (occurrence: None)
  Receive Date: 20110202
  Receipt Date: 20110202
  Transmission Date: 20110831
  Serious: Yes (Hospitalization, Other)
  Sender: FDA-Public Use
  Company Number: None

PATIENT
  Age: 54 Year
  Sex: Male

DRUGS (1)
  1. MEROPENEM [Suspect]
     Dosage: 1 GM IV Q8H
     Route: 042
     Dates: start: 20101217, end: 20101230

REACTIONS (1)
  - PYREXIA [None]
